FAERS Safety Report 9558830 (Version 3)
Quarter: 2013Q4

REPORT INFORMATION
  Report Type: Spontaneous
  Country: IT (occurrence: IT)
  Receive Date: 20130926
  Receipt Date: 20131007
  Transmission Date: 20140711
  Serious: Yes (Other)
  Sender: FDA-Public Use
  Company Number: IT-ROCHE-1279293

PATIENT
  Age: 36 Year
  Sex: Female

DRUGS (6)
  1. XOLAIR [Suspect]
     Indication: ASTHMA
     Route: 058
     Dates: start: 20110201
  2. XOLAIR [Suspect]
     Route: 058
     Dates: end: 20130325
  3. SINGULAIR [Concomitant]
  4. AERIUS [Concomitant]
  5. BUDESONIDE [Concomitant]
  6. FORMOTEROL [Concomitant]

REACTIONS (4)
  - Chest discomfort [Recovered/Resolved]
  - Bronchospasm [Recovered/Resolved]
  - Pruritus [Recovered/Resolved]
  - Anaphylactic reaction [Recovered/Resolved]
